FAERS Safety Report 5740958-1 (Version None)
Quarter: 2008Q2

REPORT INFORMATION
  Report Type: 
  Country: None (occurrence: None)
  Receive Date: 20080516
  Receipt Date: 20080509
  Transmission Date: 20081010
  Serious: Yes (Other)
  Sender: FDA-Public Use
  Company Number: NL-PFIZER INC-2008027594

PATIENT
  Sex: Male
  Weight: 76 kg

DRUGS (7)
  1. CHANTIX [Suspect]
     Indication: SMOKING CESSATION THERAPY
     Route: 048
     Dates: start: 20080122, end: 20080424
  2. ALL OTHER THERAPEUTIC PRODUCTS [Suspect]
     Indication: INSOMNIA
  3. ACETYLSALICYLIC ACID SRT [Concomitant]
     Route: 048
  4. ALL OTHER THERAPEUTIC PRODUCTS [Concomitant]
     Route: 039
  5. NITRAZEPAM [Concomitant]
  6. SPIRIVA [Concomitant]
     Dates: start: 20050728
  7. SERETIDE [Concomitant]
     Dates: start: 20050920

REACTIONS (3)
  - DELUSION [None]
  - DRUG INEFFECTIVE [None]
  - INSOMNIA [None]
